FAERS Safety Report 10097937 (Version 3)
Quarter: 2014Q2

REPORT INFORMATION
  Report Type: Spontaneous
  Country: US (occurrence: US)
  Receive Date: 20140423
  Receipt Date: 20140613
  Transmission Date: 20141212
  Serious: Yes (Other)
  Sender: FDA-Public Use
  Company Number: US-PFIZER INC-2014110156

PATIENT
  Age: 33 Year
  Sex: Female
  Weight: 80.73 kg

DRUGS (4)
  1. LYRICA [Suspect]
     Indication: NERVE INJURY
     Dosage: 75 MG, 2X/DAY
     Dates: start: 20130529
  2. LYRICA [Suspect]
     Dosage: 125 MG, 2X/DAY
  3. LYRICA [Suspect]
     Dosage: 150 MG, 2X/DAY
  4. LYRICA [Suspect]
     Dosage: 225 MG, 2X/DAY

REACTIONS (4)
  - Intervertebral disc protrusion [Unknown]
  - Back disorder [Unknown]
  - Pain [Unknown]
  - Nerve root compression [Unknown]
